FAERS Safety Report 5187993-2 (Version None)
Quarter: 2006Q4

REPORT INFORMATION
  Report Type: 
  Country: None (occurrence: None)
  Receive Date: 20061214
  Receipt Date: 20061128
  Transmission Date: 20070319
  Serious: Yes (Other)
  Sender: FDA-Public Use
  Company Number: 2006BL006580

PATIENT
  Sex: Female

DRUGS (3)
  1. GENTAMICIN SULFATE [Suspect]
     Indication: DRUG USE FOR UNKNOWN INDICATION
  2. CYTARABINE [Concomitant]
  3. DAUNORUBICIN HCL [Concomitant]

REACTIONS (2)
  - DEAFNESS [None]
  - OTOTOXICITY [None]
